FAERS Safety Report 5181154-9 (Version None)
Quarter: 2006Q4

REPORT INFORMATION
  Report Type: 
  Country: None (occurrence: None)
  Receive Date: 20061220
  Receipt Date: 20061213
  Transmission Date: 20070319
  Serious: Yes (Hospitalization)
  Sender: FDA-Public Use
  Company Number: US-BRISTOL-MYERS SQUIBB COMPANY-13611793

PATIENT

DRUGS (3)
  1. CISPLATIN [Suspect]
     Indication: NEOPLASM MALIGNANT
     Dates: start: 20061205, end: 20061207
  2. ERLOTINIB [Suspect]
     Indication: NEOPLASM MALIGNANT
     Dates: start: 20061205, end: 20061207
  3. RADIOTHERAPY [Concomitant]
     Indication: NEOPLASM MALIGNANT
     Dates: start: 20061207

REACTIONS (2)
  - CHEST PAIN [None]
  - PNEUMONIA [None]
